FAERS Safety Report 8973281 (Version 1)
Quarter: 2012Q4

REPORT INFORMATION
  Report Type: 
  Country: US (occurrence: US)
  Receive Date: 20121218
  Receipt Date: 20121218
  Transmission Date: 20130627
  Serious: No
  Sender: FDA-Public Use
  Company Number: US-BRISTOL-MYERS SQUIBB COMPANY-16431470

PATIENT
  Age: 8 Year
  Sex: Male

DRUGS (3)
  1. ABILIFY [Suspect]
     Indication: ATTENTION DEFICIT/HYPERACTIVITY DISORDER
     Dosage: titrated from 2mg to 5mg to 10mg, every 2 days with in a week
reduced to 5mg
  2. RISPERIDONE [Suspect]
  3. BENADRYL [Concomitant]

REACTIONS (5)
  - Musculoskeletal stiffness [Recovered/Resolved]
  - Muscle spasms [Recovered/Resolved]
  - Protrusion tongue [Recovered/Resolved]
  - Drooling [Recovered/Resolved]
  - Jaw disorder [Recovered/Resolved]
